FAERS Safety Report 7646565-8 (Version None)
Quarter: 2011Q3

REPORT INFORMATION
  Report Type: 
  Country: None (occurrence: None)
  Receive Date: 20110729
  Receipt Date: 20110729
  Transmission Date: 20111222
  Serious: No
  Sender: FDA-Public Use
  Company Number: None

PATIENT
  Sex: Female
  Weight: 90.7194 kg

DRUGS (1)
  1. ACIPHEX [Suspect]
     Indication: OESOPHAGEAL DISORDER
     Dosage: 20MG 1 QD

REACTIONS (6)
  - RESPIRATORY TRACT CONGESTION [None]
  - NAUSEA [None]
  - BURNING SENSATION [None]
  - PRODUCT SUBSTITUTION ISSUE [None]
  - WHEEZING [None]
  - COUGH [None]
